FAERS Safety Report 13752736 (Version 1)
Quarter: 2017Q3

REPORT INFORMATION
  Report Type: Spontaneous
  Country: US (occurrence: US)
  Receive Date: 20170713
  Receipt Date: 20170713
  Transmission Date: 20171127
  Serious: Yes (Hospitalization)
  Sender: FDA-Public Use
  Company Number: US-MALLINCKRODT-T201702917

PATIENT
  Age: 11 Month
  Sex: Male
  Weight: 11 kg

DRUGS (2)
  1. LORAZEPAM. [Concomitant]
     Active Substance: LORAZEPAM
     Indication: SEIZURE
     Dosage: 4 MG, UNK
     Route: 030
  2. METHADONE [Suspect]
     Active Substance: METHADONE HYDROCHLORIDE
     Route: 065

REACTIONS (6)
  - Respiratory failure [Unknown]
  - Bradyphrenia [Unknown]
  - Somnolence [Unknown]
  - Blood ketone body decreased [Unknown]
  - Cyanosis [Unknown]
  - Hyperinsulinaemic hypoglycaemia [Recovered/Resolved]
